FAERS Safety Report 4559038-6 (Version None)
Quarter: 2005Q1

REPORT INFORMATION
  Report Type: 
  Country: None (occurrence: None)
  Receive Date: 20050124
  Receipt Date: 20050113
  Transmission Date: 20050727
  Serious: Yes (Hospitalization)
  Sender: FDA-Public Use
  Company Number: US-JNJFOC-20050103427

PATIENT
  Sex: Female
  Weight: 97.07 kg

DRUGS (15)
  1. INFLIXIMAB [Suspect]
     Indication: RHEUMATOID ARTHRITIS
     Route: 042
     Dates: start: 20020305
  2. POTASSIUM [Concomitant]
  3. FUROSIMIDE [Concomitant]
  4. ATENOLOL [Concomitant]
  5. BUSPAR [Concomitant]
  6. PROZAC [Concomitant]
  7. WARFARIN SODIUM [Concomitant]
     Dosage: 1/2 TO 1MG DAILY.
  8. ZOCOR [Concomitant]
  9. VIOXX [Concomitant]
  10. ASPIRIN [Concomitant]
  11. TRAMADOL HCL [Concomitant]
  12. METHOTREXATE [Concomitant]
  13. CALCIUM GLUCONATE [Concomitant]
  14. MAXALT [Concomitant]
  15. DOXIPIN [Concomitant]

REACTIONS (1)
  - CORONARY ARTERY DISEASE [None]
